FAERS Safety Report 7518429-1 (Version None)
Quarter: 2011Q2

REPORT INFORMATION
  Report Type: 
  Country: None (occurrence: None)
  Receive Date: 20110602
  Receipt Date: 20110518
  Transmission Date: 20111010
  Serious: Yes (Hospitalization)
  Sender: FDA-Public Use
  Company Number: US-JNJFOC-20100903929

PATIENT
  Sex: Male
  Weight: 44 kg

DRUGS (3)
  1. INFLIXIMAB, RECOMBINANT [Suspect]
     Indication: CROHN'S DISEASE
     Route: 042
     Dates: start: 20100108
  2. MESALAMINE [Concomitant]
     Indication: CROHN'S DISEASE
  3. INFLIXIMAB, RECOMBINANT [Suspect]
     Route: 042
     Dates: start: 20100430

REACTIONS (2)
  - COLONIC STENOSIS [None]
  - CROHN'S DISEASE [None]
